FAERS Safety Report 9594498 (Version 1)
Quarter: 2013Q4

REPORT INFORMATION
  Report Type: Spontaneous
  Country: US (occurrence: US)
  Receive Date: 20131004
  Receipt Date: 20131004
  Transmission Date: 20140711
  Serious: No
  Sender: FDA-Public Use
  Company Number: US-GLAXOSMITHKLINE-A1004802A

PATIENT
  Age: 36 Year
  Sex: Female

DRUGS (1)
  1. IMITREX [Suspect]
     Dosage: 20MG UNKNOWN
     Route: 045

REACTIONS (2)
  - Headache [Unknown]
  - Drug ineffective [Unknown]
